FAERS Safety Report 22378463 (Version 7)
Quarter: 2025Q1

REPORT INFORMATION
  Report Type: Report from Study
  Country: US (occurrence: US)
  Receive Date: 20230529
  Receipt Date: 20250311
  Transmission Date: 20250408
  Serious: Yes (Hospitalization, Other)
  Sender: TAKEDA
  Company Number: US-TAKEDA-2022TUS056217

PATIENT
  Age: 74 Year
  Sex: Female
  Weight: 90 kg

DRUGS (27)
  1. HUMAN IMMUNOGLOBULIN G [Suspect]
     Active Substance: HUMAN IMMUNOGLOBULIN G
     Indication: Immunodeficiency common variable
     Dosage: 15 GRAM, Q2WEEKS
     Dates: start: 20210504
  2. HUMAN IMMUNOGLOBULIN G [Suspect]
     Active Substance: HUMAN IMMUNOGLOBULIN G
     Indication: Congenital hypogammaglobulinaemia
  3. ACETAMINOPHEN [Concomitant]
     Active Substance: ACETAMINOPHEN
  4. FLUTICASONE PROPIONATE [Concomitant]
     Active Substance: FLUTICASONE PROPIONATE
  5. ZYRTEC [Concomitant]
     Active Substance: CETIRIZINE HYDROCHLORIDE
  6. EZETIMIBE [Concomitant]
     Active Substance: EZETIMIBE
  7. RITUXAN [Concomitant]
     Active Substance: RITUXIMAB
  8. GABAPENTIN [Concomitant]
     Active Substance: GABAPENTIN
  9. METHOTREXATE [Concomitant]
     Active Substance: METHOTREXATE
  10. DICLOFENAC SODIUM [Concomitant]
     Active Substance: DICLOFENAC SODIUM
  11. ESTRADIOL [Concomitant]
     Active Substance: ESTRADIOL
  12. FAMOTIDINE [Concomitant]
     Active Substance: FAMOTIDINE
  13. CHLORPHENIRAMINE MALEATE [Concomitant]
     Active Substance: CHLORPHENIRAMINE MALEATE
  14. OXYGEN [Concomitant]
     Active Substance: OXYGEN
  15. PREDNISONE [Concomitant]
     Active Substance: PREDNISONE
  16. VITAMIN D3 [Concomitant]
     Active Substance: CHOLECALCIFEROL
  17. DIPHENHYDRAMINE HYDROCHLORIDE [Concomitant]
     Active Substance: DIPHENHYDRAMINE HYDROCHLORIDE
  18. Lmx [Concomitant]
  19. METRONIDAZOLE [Concomitant]
     Active Substance: METRONIDAZOLE
  20. BACTRIM [Concomitant]
     Active Substance: SULFAMETHOXAZOLE\TRIMETHOPRIM
  21. REPATHA [Concomitant]
     Active Substance: EVOLOCUMAB
  22. VALSARTAN [Concomitant]
     Active Substance: VALSARTAN
  23. SIMETHICONE (DIMETHICONE) [Concomitant]
     Active Substance: DIMETHICONE
  24. AZITHROMYCIN [Concomitant]
     Active Substance: AZITHROMYCIN
  25. EPINEPHRINE [Concomitant]
     Active Substance: EPINEPHRINE
  26. CICLOPIROX [Concomitant]
     Active Substance: CICLOPIROX
  27. DIPHENHYDRAMINE [Concomitant]
     Active Substance: DIPHENHYDRAMINE

REACTIONS (10)
  - Sternal fracture [Unknown]
  - Road traffic accident [Unknown]
  - Limb injury [Unknown]
  - Tongue erythema [Unknown]
  - Tongue coated [Unknown]
  - Glossodynia [Unknown]
  - Post procedural complication [Unknown]
  - Sinusitis [Unknown]
  - Nasopharyngitis [Not Recovered/Not Resolved]
  - Oropharyngeal pain [Unknown]

NARRATIVE: CASE EVENT DATE: 20230208
